FAERS Safety Report 5787948-0 (Version None)
Quarter: 2008Q2

REPORT INFORMATION
  Report Type: 
  Country: None (occurrence: None)
  Receive Date: 20080625
  Receipt Date: 20080618
  Transmission Date: 20081010
  Serious: Yes (Death, Hospitalization)
  Sender: FDA-Public Use
  Company Number: B0526234A

PATIENT
  Age: 87 Year
  Sex: Female

DRUGS (16)
  1. VALTREX [Suspect]
     Dosage: 500MG THREE TIMES PER DAY
     Route: 048
     Dates: start: 20080201, end: 20080530
  2. MYCOSTATIN [Suspect]
     Indication: DRUG USE FOR UNKNOWN INDICATION
     Route: 048
     Dates: start: 20080529, end: 20080530
  3. ZOCOR [Suspect]
     Indication: DRUG USE FOR UNKNOWN INDICATION
     Route: 065
  4. REMERON [Suspect]
     Indication: DRUG USE FOR UNKNOWN INDICATION
     Route: 065
  5. PREDNISOLONE [Concomitant]
  6. ALBYL-E [Concomitant]
  7. ACETAMINOPHEN [Concomitant]
  8. LACTULOSE [Concomitant]
  9. NITRAZEPAM [Concomitant]
     Dates: end: 20080602
  10. NITROGLYCERIN [Concomitant]
  11. METOPROLOL [Concomitant]
     Dates: end: 20080602
  12. SELEXID [Concomitant]
     Dates: start: 20080605, end: 20080612
  13. ZYRTEC [Concomitant]
     Dates: end: 20080602
  14. VIVAL [Concomitant]
     Dates: end: 20080602
  15. ALOPAM [Concomitant]
     Indication: ANXIETY
  16. PHENERGAN HCL [Concomitant]
     Indication: PRURITUS

REACTIONS (3)
  - DEATH [None]
  - HEPATIC ENZYME ABNORMAL [None]
  - HEPATITIS [None]
